FAERS Safety Report 12318424 (Version 2)
Quarter: 2016Q2

REPORT INFORMATION
  Report Type: Spontaneous
  Country: DE (occurrence: DE)
  Receive Date: 20160429
  Receipt Date: 20160607
  Transmission Date: 20160815
  Serious: Yes (Death, Other)
  Sender: FDA-Public Use
  Company Number: DE-BIOGEN-2016BI00209476

PATIENT
  Sex: Female

DRUGS (1)
  1. TYSABRI [Suspect]
     Active Substance: NATALIZUMAB
     Indication: MATERNAL EXPOSURE TIMING UNSPECIFIED
     Route: 064
     Dates: start: 20120723, end: 20140504

REACTIONS (3)
  - Foetal exposure timing unspecified [Recovered/Resolved]
  - Pneumothorax [Fatal]
  - Foetal heart rate deceleration abnormality [Unknown]

NARRATIVE: CASE EVENT DATE: 2014
